FAERS Safety Report 5807499-4 (Version None)
Quarter: 2008Q3

REPORT INFORMATION
  Report Type: 
  Country: None (occurrence: None)
  Receive Date: 20080709
  Receipt Date: 20080709
  Transmission Date: 20090109
  Serious: Yes (Hospitalization)
  Sender: FDA-Public Use
  Company Number: None

PATIENT
  Age: 64 Year
  Sex: Male

DRUGS (2)
  1. METHOTREXATE [Suspect]
     Indication: PSORIASIS
     Dosage: 10 MG QWEEK PO
     Route: 048
     Dates: start: 20080610, end: 20080612
  2. METFORMIN [Suspect]
     Indication: DIABETES MELLITUS
     Dosage: 1000 MG BID PO
     Route: 048
     Dates: start: 20040819, end: 20080612

REACTIONS (4)
  - BLOOD UREA INCREASED [None]
  - CONFUSIONAL STATE [None]
  - HYPERKALAEMIA [None]
  - HYPOTENSION [None]
